FAERS Safety Report 9363086 (Version 1)
Quarter: 2013Q2

REPORT INFORMATION
  Report Type: Spontaneous
  Country: FR (occurrence: None)
  Receive Date: 20130619
  Receipt Date: 20130619
  Transmission Date: 20140414
  Serious: Yes (Death, Other)
  Sender: FDA-Public Use
  Company Number: SYM-2013-04788

PATIENT
  Age: 88 Year
  Sex: Female

DRUGS (3)
  1. FLAGYL [Suspect]
     Indication: INFECTION
     Route: 048
     Dates: start: 20130507, end: 20130516
  2. ROCEPHINE [Suspect]
     Indication: INFECTION
     Route: 048
     Dates: start: 20130318, end: 20130425
  3. AUGMENTIN [Suspect]
     Indication: INFECTION
     Route: 048
     Dates: start: 20130425, end: 20130507

REACTIONS (1)
  - Convulsion [None]
